FAERS Safety Report 4662427-2 (Version None)
Quarter: 2005Q2

REPORT INFORMATION
  Report Type: 
  Country: None (occurrence: None)
  Receive Date: 20050512
  Receipt Date: 20050502
  Transmission Date: 20051028
  Serious: Yes (Death, Other)
  Sender: FDA-Public Use
  Company Number: 2005049148

PATIENT
  Age: 79 Year
  Sex: Female
  Weight: 64 kg

DRUGS (1)
  1. FRAGMIN [Suspect]
     Indication: JOINT PROSTHESIS USER
     Dosage: 5000 I.U. (5000 I.U., 1 IN 1 D), SUBCUTANEOUS
     Route: 058
     Dates: start: 20050305, end: 20050312

REACTIONS (4)
  - CARDIAC ARREST [None]
  - DRUG INEFFECTIVE [None]
  - PULMONARY EMBOLISM [None]
  - RESPIRATORY ARREST [None]
